FAERS Safety Report 5366394-8 (Version None)
Quarter: 2007Q2

REPORT INFORMATION
  Report Type: 
  Country: None (occurrence: None)
  Receive Date: 20070622
  Receipt Date: 20070613
  Transmission Date: 20071010
  Serious: Yes (Hospitalization)
  Sender: FDA-Public Use
  Company Number: PHHO2007MX10093

PATIENT
  Age: 85 Year
  Sex: Male

DRUGS (1)
  1. CO-DIOVAN [Suspect]
     Indication: HYPERTENSION
     Dosage: 80/12.5MG DAILY
     Route: 048
     Dates: start: 20070501

REACTIONS (1)
  - RENAL DISORDER [None]
